FAERS Safety Report 4636294-7 (Version None)
Quarter: 2005Q2

REPORT INFORMATION
  Report Type: 
  Country: None (occurrence: None)
  Receive Date: 20050415
  Receipt Date: 20040708
  Transmission Date: 20051028
  Serious: No
  Sender: FDA-Public Use
  Company Number: US-BRISTOL-MYERS SQUIBB COMPANY-12635306

PATIENT
  Age: 69 Year
  Sex: Female

DRUGS (5)
  1. PARAPLATIN [Suspect]
     Indication: OVARIAN CANCER
     Route: 042
     Dates: start: 20031013, end: 20031013
  2. GEMZAR [Concomitant]
     Dates: start: 20030923, end: 20031013
  3. KYTRIL [Concomitant]
     Dates: start: 20030923, end: 20031013
  4. PROCRIT [Concomitant]
     Dates: start: 20030923, end: 20031013
  5. DECADRON [Concomitant]
     Dates: start: 20030923, end: 20031023

REACTIONS (7)
  - BLOOD PRESSURE INCREASED [None]
  - DIARRHOEA [None]
  - DIZZINESS [None]
  - FLUSHING [None]
  - HYPERHIDROSIS [None]
  - NAUSEA [None]
  - VOMITING [None]
